FAERS Safety Report 11048761 (Version 1)
Quarter: 2015Q2

REPORT INFORMATION
  Report Type: Spontaneous
  Country: US (occurrence: US)
  Receive Date: 20150420
  Receipt Date: 20150420
  Transmission Date: 20150821
  Serious: No
  Sender: FDA-Public Use
  Company Number: US-009507513-1504USA014776

PATIENT
  Age: 35 Year
  Sex: Female
  Weight: 88.44 kg

DRUGS (2)
  1. NEXPLANON [Suspect]
     Active Substance: ETONOGESTREL
     Indication: CONTRACEPTION
     Dosage: 1 DF, FREQUENCY: 3 YEARS
     Route: 059
     Dates: start: 20140326
  2. VITAMINS (UNSPECIFIED) [Concomitant]
     Active Substance: VITAMINS
     Dosage: UNK

REACTIONS (2)
  - Implant site pain [Unknown]
  - Implant site reaction [Unknown]

NARRATIVE: CASE EVENT DATE: 20150413
